FAERS Safety Report 8046298-2 (Version None)
Quarter: 2012Q1

REPORT INFORMATION
  Report Type: 
  Country: None (occurrence: None)
  Receive Date: 20120113
  Receipt Date: 20120107
  Transmission Date: 20120608
  Serious: No
  Sender: FDA-Public Use
  Company Number: US-PFIZER INC-2012005051

PATIENT
  Sex: Female
  Weight: 49.433 kg

DRUGS (3)
  1. CELEBREX [Suspect]
     Indication: OSTEOARTHRITIS
     Dosage: 200 MG, DAILY
     Dates: start: 20120105, end: 20120107
  2. PREDNISONE [Suspect]
     Indication: POLYMYALGIA RHEUMATICA
     Dosage: UNK
  3. LEVOTHYROXINE [Concomitant]
     Indication: THYROID DISORDER
     Dosage: UNK, DAILY

REACTIONS (2)
  - GASTRIC DISORDER [None]
  - DRUG INEFFECTIVE [None]
